FAERS Safety Report 4748344-8 (Version None)
Quarter: 2005Q3

REPORT INFORMATION
  Report Type: 
  Country: None (occurrence: None)
  Receive Date: 20050818
  Receipt Date: 20041105
  Transmission Date: 20060218
  Serious: Yes (Hospitalization)
  Sender: FDA-Public Use
  Company Number: DE-MERCK-0411DEU00111

PATIENT
  Age: 67 Year
  Sex: Female

DRUGS (16)
  1. VIOXX [Suspect]
     Indication: PAIN
     Route: 048
     Dates: start: 20000101, end: 20020214
  2. VIOXX [Suspect]
     Route: 048
     Dates: start: 20020101, end: 20040101
  3. HYDROCHLOROTHIAZIDE AND TRIAMTERENE [Concomitant]
     Route: 048
     Dates: start: 19980101
  4. POTASSIUM BICARBONATE AND POTASSIUM CITRATE [Concomitant]
     Route: 048
     Dates: start: 19980101
  5. THYROID [Concomitant]
     Route: 048
     Dates: start: 19990101
  6. BISOPROLOL FUMARATE [Concomitant]
     Route: 048
     Dates: start: 19990101
  7. MEDICINALPRODUCT NOT SPECIFIED BY SENDER [Concomitant]
     Route: 048
     Dates: start: 19960101
  8. MEDICINALPRODUCT NOT SPECIFIED BY SENDER [Concomitant]
     Route: 048
  9. MEDICINALPRODUCT NOT SPECIFIED BY SENDER [Concomitant]
     Route: 048
     Dates: start: 19750101
  10. MEDICINALPRODUCT NOT SPECIFIED BY SENDER [Concomitant]
     Route: 048
  11. MEDICINALPRODUCT NOT SPECIFIED BY SENDER [Concomitant]
     Route: 048
     Dates: start: 19950101
  12. MEDICINALPRODUCT NOT SPECIFIED BY SENDER [Concomitant]
     Route: 048
     Dates: start: 20000101
  13. MEDICINALPRODUCT NOT SPECIFIED BY SENDER [Concomitant]
     Route: 048
     Dates: start: 20000101
  14. MEDICINALPRODUCT NOT SPECIFIED BY SENDER [Concomitant]
     Route: 048
     Dates: start: 20000101
  15. MEDICINALPRODUCT NOT SPECIFIED BY SENDER [Concomitant]
     Route: 048
  16. MEDICINALPRODUCT NOT SPECIFIED BY SENDER [Concomitant]
     Route: 048

REACTIONS (12)
  - ADVERSE EVENT [None]
  - ANXIETY [None]
  - BALANCE DISORDER [None]
  - CAROTID ARTERY ANEURYSM [None]
  - CEREBRAL HAEMORRHAGE [None]
  - CEREBROVASCULAR ACCIDENT [None]
  - DIZZINESS [None]
  - EYE DISORDER [None]
  - GENERAL PHYSICAL HEALTH DETERIORATION [None]
  - HEADACHE [None]
  - NAUSEA [None]
  - SUBARACHNOID HAEMORRHAGE [None]
